FAERS Safety Report 13313645 (Version 1)
Quarter: 2017Q1

REPORT INFORMATION
  Report Type: Other
  Country: DE (occurrence: DE)
  Receive Date: 20170309
  Receipt Date: 20170309
  Transmission Date: 20170428
  Serious: Yes (Hospitalization)
  Sender: FDA-Public Use
  Company Number: DE-GE HEALTHCARE LIFE SCIENCES-TCGN-PR-1701S-0004

PATIENT

DRUGS (2)
  1. DRYTEC (TECHNETIUM TC99M GENERATOR) [Suspect]
     Active Substance: TECHNETIUM TC-99M SODIUM PERTECHNETATE
     Indication: THYROID MASS
     Dosage: 73 MBQ, SINGLE
     Route: 042
  2. L-THYROXIN [Concomitant]
     Active Substance: LEVOTHYROXINE SODIUM

REACTIONS (14)
  - Feeling cold [Unknown]
  - Blood pressure decreased [Unknown]
  - Palpitations [Unknown]
  - Limb discomfort [Unknown]
  - Heart rate increased [Unknown]
  - Paraesthesia [Unknown]
  - Headache [Unknown]
  - Blood pressure increased [Unknown]
  - Tremor [Unknown]
  - Muscle contracture [Unknown]
  - Dyspnoea [Unknown]
  - Panic attack [Unknown]
  - Fatigue [Unknown]
  - Dyspnoea exertional [Unknown]

NARRATIVE: CASE EVENT DATE: 20161122
